FAERS Safety Report 5957694-9 (Version None)
Quarter: 2008Q4

REPORT INFORMATION
  Report Type: 
  Country: None (occurrence: None)
  Receive Date: 20081110
  Receipt Date: 20081012
  Transmission Date: 20090506
  Serious: Yes (Death)
  Sender: FDA-Public Use
  Company Number: CHPA2008US17934

PATIENT
  Age: 39 Year
  Sex: Female

DRUGS (10)
  1. ACETYLSALICYLIC ACID SRT [Suspect]
     Dosage: ORAL
     Route: 048
  2. CAFFEINE (NCH) (CAFFEINE) [Suspect]
     Dosage: ORAL
     Route: 048
  3. QUETIAPINE FUMARATE [Suspect]
     Dosage: ORAL
     Route: 048
  4. BUTALBITAL, ACETAMINOPHEN + CAFFEINE (BUTALBITAL, CAFFEINE, PARACETAMO [Suspect]
     Dosage: ORAL
     Route: 048
  5. ACETAMINOPHEN [Suspect]
     Dosage: ORAL
     Route: 048
  6. IBUPROFEN [Suspect]
     Dosage: ORAL
     Route: 048
  7. ESCITALOPRAM [Suspect]
     Dosage: ORAL
     Route: 048
  8. NAPROXEN [Suspect]
     Dosage: ORAL
     Route: 048
  9. FEXOFENADINE HCL [Suspect]
     Dosage: ORAL
     Route: 048
  10. ANGIOTENSIN RECEPTOR BLOCKER [Suspect]
     Dosage: ORAL
     Route: 048

REACTIONS (1)
  - COMPLETED SUICIDE [None]
